FAERS Safety Report 23140220 (Version 1)
Quarter: 2023Q4

REPORT INFORMATION
  Report Type: Report from Study
  Country: US (occurrence: US)
  Receive Date: 20231102
  Receipt Date: 20231102
  Transmission Date: 20240109
  Serious: Yes (Other)
  Sender: FDA-Public Use
  Company Number: US-BIOGEN-2022BI01167843

PATIENT
  Sex: Male

DRUGS (1)
  1. VUMERITY [Suspect]
     Active Substance: DIROXIMEL FUMARATE
     Indication: Multiple sclerosis
     Route: 050
     Dates: start: 20221029

REACTIONS (8)
  - Self-injurious ideation [Unknown]
  - Suicidal ideation [Unknown]
  - Multiple sclerosis [Unknown]
  - Dyspnoea [Unknown]
  - Hypertension [Unknown]
  - Depression [Unknown]
  - Eating disorder [Unknown]
  - Burning sensation [Unknown]

NARRATIVE: CASE EVENT DATE: 20220101
